FAERS Safety Report 7235587-7 (Version None)
Quarter: 2011Q1

REPORT INFORMATION
  Report Type: 
  Country: None (occurrence: None)
  Receive Date: 20110120
  Receipt Date: 20110118
  Transmission Date: 20110831
  Serious: Yes (Other)
  Sender: FDA-Public Use
  Company Number: US-PFIZER INC-2011012305

PATIENT
  Age: 50 Year
  Sex: Female
  Weight: 52.154 kg

DRUGS (1)
  1. NORVASC [Suspect]
     Dosage: 5 MG, DAILY
     Route: 048

REACTIONS (6)
  - PALPITATIONS [None]
  - FEELING ABNORMAL [None]
  - INSOMNIA [None]
  - ANGINA PECTORIS [None]
  - DIZZINESS [None]
  - NAUSEA [None]
